FAERS Safety Report 8786284 (Version 1)
Quarter: 2012Q4

REPORT INFORMATION
  Report Type: 
  Country: FR (occurrence: FR)
  Receive Date: 20120914
  Receipt Date: 20120914
  Transmission Date: 20130627
  Serious: Yes (Life-Threatening)
  Sender: FDA-Public Use
  Company Number: FR-PFIZER INC-2012222190

PATIENT
  Age: 56 Year
  Sex: Female

DRUGS (5)
  1. XANAX [Suspect]
     Indication: PREMEDICATION
     Dosage: UNK
     Route: 048
     Dates: start: 20120223, end: 20120223
  2. TRACRIUM [Suspect]
     Indication: ANAESTHESIA
     Dosage: UNK
     Route: 042
     Dates: start: 20120223, end: 20120223
  3. ULTIVA [Suspect]
     Indication: ANAESTHESIA
     Dosage: UNK
     Route: 042
     Dates: start: 20120223, end: 20120223
  4. PROPOFOL [Suspect]
     Indication: ANAESTHESIA
     Dosage: UNK
     Route: 042
     Dates: start: 20120223, end: 20120223
  5. CEFUROXIME [Suspect]
     Indication: ANTIBIOTIC PROPHYLAXIS
     Dosage: UNK
     Route: 042
     Dates: start: 20120223, end: 20120223

REACTIONS (1)
  - Anaphylactic reaction [Recovered/Resolved]
